FAERS Safety Report 24648649 (Version 2)
Quarter: 2024Q4

REPORT INFORMATION
  Report Type: Spontaneous
  Country: DE (occurrence: DE)
  Receive Date: 20241121
  Receipt Date: 20241127
  Transmission Date: 20250115
  Serious: Yes (Hospitalization, Other)
  Sender: DAIICHI
  Company Number: DE-DSJP-DS-2024-108289-DE

PATIENT
  Sex: Male

DRUGS (2)
  1. EDOXABAN TOSYLATE [Suspect]
     Active Substance: EDOXABAN TOSYLATE
     Indication: Atrial fibrillation
     Dosage: 60 MG, QD
     Route: 065
  2. EDOXABAN TOSYLATE [Suspect]
     Active Substance: EDOXABAN TOSYLATE
     Indication: Cardiac disorder

REACTIONS (9)
  - Prostatic disorder [Unknown]
  - Blood urine present [Unknown]
  - Blood urine present [Recovered/Resolved]
  - Chromaturia [Not Recovered/Not Resolved]
  - Malaise [Unknown]
  - Photopsia [Unknown]
  - Vision blurred [Unknown]
  - Dizziness [Unknown]
  - Wrong technique in product usage process [Unknown]

NARRATIVE: CASE EVENT DATE: 20241109
